FAERS Safety Report 6556252-5 (Version None)
Quarter: 2010Q1

REPORT INFORMATION
  Report Type: 
  Country: None (occurrence: None)
  Receive Date: 20100128
  Receipt Date: 20090916
  Transmission Date: 20100710
  Serious: Yes (Hospitalization)
  Sender: FDA-Public Use
  Company Number: US-TEVA-207889USA

PATIENT
  Sex: Male

DRUGS (2)
  1. COPAXONE [Suspect]
     Indication: MULTIPLE SCLEROSIS
     Route: 058
     Dates: start: 20010612
  2. ANTI-MALARIAL [Suspect]
     Indication: MALARIA PROPHYLAXIS

REACTIONS (1)
  - PSYCHOTIC DISORDER [None]
